FAERS Safety Report 25047336 (Version 1)
Quarter: 2025Q1

REPORT INFORMATION
  Report Type: Spontaneous
  Country: GB (occurrence: GB)
  Receive Date: 20250306
  Receipt Date: 20250306
  Transmission Date: 20250409
  Serious: Yes (Hospitalization)
  Sender: PFIZER
  Company Number: GB-PFIZER INC-202500049877

PATIENT
  Age: 73 Year
  Sex: Female

DRUGS (1)
  1. ELREXFIO [Suspect]
     Active Substance: ELRANATAMAB-BCMM
     Dates: start: 20250203, end: 20250303

REACTIONS (4)
  - Malignant neoplasm progression [Unknown]
  - Renal impairment [Unknown]
  - Paraproteinaemia [Unknown]
  - Light chain analysis increased [Unknown]

NARRATIVE: CASE EVENT DATE: 20250226
